FAERS Safety Report 12580078 (Version 1)
Quarter: 2016Q3

REPORT INFORMATION
  Report Type: Spontaneous
  Country: US (occurrence: US)
  Receive Date: 20160721
  Receipt Date: 20160721
  Transmission Date: 20161109
  Serious: Yes (Other)
  Sender: FDA-Public Use
  Company Number: US-BECTON DICKINSON-2016BDN00343

PATIENT
  Age: 1 Day
  Sex: Male
  Weight: .6 kg

DRUGS (2)
  1. CHLORHEXIDINE [Suspect]
     Active Substance: CHLORHEXIDINE
     Indication: ANTIBIOTIC PROPHYLAXIS
     Dosage: APPLIED TO THE UMBILICAL STUMP AND SURROUNDING ABDOMINAL SKIN
  2. SURFACTANT [Concomitant]
     Route: 007

REACTIONS (6)
  - Bloody discharge [Not Recovered/Not Resolved]
  - Skin disorder [Recovering/Resolving]
  - Chemical burn of skin [Not Recovered/Not Resolved]
  - Respiratory failure [None]
  - Ecchymosis [None]
  - Intraventricular haemorrhage [None]
